FAERS Safety Report 23255467 (Version 1)
Quarter: 2023Q4

REPORT INFORMATION
  Report Type: Report from Study
  Country: US (occurrence: US)
  Receive Date: 20231203
  Receipt Date: 20231203
  Transmission Date: 20240110
  Serious: Yes (Other)
  Sender: FDA-Public Use
  Company Number: US-ABBVIE-5517029

PATIENT
  Sex: Male
  Weight: 109 kg

DRUGS (6)
  1. RESTASIS [Suspect]
     Active Substance: CYCLOSPORINE
     Indication: Dry eye
     Dosage: 1 DROP EACH EYE?0.5MG/ML EML?STARTED APPROXIMATELY 8 YEARS AGO
     Route: 047
  2. LINZESS [Suspect]
     Active Substance: LINACLOTIDE
     Indication: Constipation
     Dosage: FORM STRENGTH WAS 290 MICROGRAM ?START DATE TEXT WAS APPROXIMATELY 9-10 YEARS AGO
     Route: 048
  3. CARVEDILOL [Concomitant]
     Active Substance: CARVEDILOL
     Indication: Blood pressure management
  4. LACTULOSE [Concomitant]
     Active Substance: LACTULOSE
     Indication: Constipation
  5. GABAPENTIN [Concomitant]
     Active Substance: GABAPENTIN
     Indication: Nerve injury
  6. OMEPRAZOLE [Concomitant]
     Active Substance: OMEPRAZOLE
     Indication: Gastrointestinal disorder
     Route: 065

REACTIONS (4)
  - Heart rate decreased [Recovering/Resolving]
  - Prostate cancer [Recovering/Resolving]
  - Asthenia [Recovering/Resolving]
  - Chronic kidney disease [Not Recovered/Not Resolved]

NARRATIVE: CASE EVENT DATE: 20150101
